FAERS Safety Report 8166336-6 (Version None)
Quarter: 2012Q1

REPORT INFORMATION
  Report Type: 
  Country: None (occurrence: None)
  Receive Date: 20120227
  Receipt Date: 20110805
  Transmission Date: 20120608
  Serious: No
  Sender: FDA-Public Use
  Company Number: US-MYLANLABS-2011S1012288

PATIENT
  Age: 16 Year
  Sex: Male
  Weight: 117.94 kg

DRUGS (4)
  1. AMNESTEEM [Suspect]
     Route: 048
  2. STEROIDS [Concomitant]
  3. AMNESTEEM [Suspect]
     Route: 048
  4. AMNESTEEM [Suspect]
     Indication: ACNE CONGLOBATA
     Route: 048
     Dates: start: 20110215

REACTIONS (1)
  - ASTHMA [None]
